FAERS Safety Report 21599114 (Version 1)
Quarter: 2022Q4

REPORT INFORMATION
  Report Type: Spontaneous
  Country: AU (occurrence: AU)
  Receive Date: 20221115
  Receipt Date: 20221115
  Transmission Date: 20230113
  Serious: Yes (Other)
  Sender: FDA-Public Use
  Company Number: None

PATIENT

DRUGS (4)
  1. IBUPROFEN [Suspect]
     Active Substance: IBUPROFEN
     Indication: Product used for unknown indication
     Route: 065
  2. ACETAMINOPHEN [Suspect]
     Active Substance: ACETAMINOPHEN
     Indication: Product used for unknown indication
     Route: 065
  3. ASCORBIC ACID [Concomitant]
     Active Substance: ASCORBIC ACID
  4. CALTRATE [Concomitant]
     Active Substance: CALCIUM CARBONATE

REACTIONS (1)
  - Gastric ulcer perforation [Not Recovered/Not Resolved]

NARRATIVE: CASE EVENT DATE: 20201011
